FAERS Safety Report 4361519-5 (Version None)
Quarter: 2004Q2

REPORT INFORMATION
  Report Type: 
  Country: None (occurrence: None)
  Receive Date: 20040521
  Receipt Date: 20040119
  Transmission Date: 20050107
  Serious: No
  Sender: FDA-Public Use
  Company Number: US-GLAXOSMITHKLINE-A0494821A

PATIENT
  Sex: Female

DRUGS (2)
  1. ZYBAN [Suspect]
     Route: 048
  2. WELLBUTRIN [Concomitant]
     Indication: ILL-DEFINED DISORDER

REACTIONS (2)
  - OEDEMA PERIPHERAL [None]
  - URTICARIA [None]
